FAERS Safety Report 15288868 (Version 1)
Quarter: 2018Q3

REPORT INFORMATION
  Report Type: Report from Study
  Country: FI (occurrence: FI)
  Receive Date: 20180817
  Receipt Date: 20180817
  Transmission Date: 20181010
  Serious: Yes (Other)
  Sender: FDA-Public Use
  Company Number: FI-MYLANLABS-2018M1062084

PATIENT
  Age: 50 Year
  Sex: Male

DRUGS (2)
  1. LEPONEX [Suspect]
     Active Substance: CLOZAPINE
     Indication: SCHIZOPHRENIA
     Dosage: UNK
     Dates: start: 1996, end: 2016
  2. LEPONEX [Suspect]
     Active Substance: CLOZAPINE
     Dosage: UNK
     Dates: start: 2016, end: 201807

REACTIONS (2)
  - Haemoglobin decreased [Unknown]
  - Neutropenia [Recovered/Resolved]

NARRATIVE: CASE EVENT DATE: 2016
